FAERS Safety Report 20037345 (Version 1)
Quarter: 2021Q4

REPORT INFORMATION
  Report Type: Spontaneous
  Country: CA (occurrence: CA)
  Receive Date: 20211105
  Receipt Date: 20211105
  Transmission Date: 20220304
  Serious: Yes (Other)
  Sender: FDA-Public Use
  Company Number: CA-TEVA-2021-CA-1972003

PATIENT
  Age: 75 Year
  Sex: Female

DRUGS (2)
  1. METOPROLOL [Suspect]
     Active Substance: METOPROLOL
     Route: 048
  2. PROPAFENONE [Suspect]
     Active Substance: PROPAFENONE
     Route: 048

REACTIONS (8)
  - Bradycardia [Unknown]
  - Confusional state [Unknown]
  - Dizziness [Unknown]
  - Feeling hot [Unknown]
  - Hyperhidrosis [Unknown]
  - Hypotension [Unknown]
  - Oxygen saturation decreased [Unknown]
  - Vomiting [Unknown]
